FAERS Safety Report 16205045 (Version 1)
Quarter: 2019Q2

REPORT INFORMATION
  Report Type: Spontaneous
  Country: US (occurrence: US)
  Receive Date: 20190416
  Receipt Date: 20190416
  Transmission Date: 20190711
  Serious: No
  Sender: FDA-Public Use
  Company Number: US-CHILTERN-US-2019-000329

PATIENT
  Age: 58 Year
  Sex: Female
  Weight: 63.49 kg

DRUGS (1)
  1. RHOPRESSA [Suspect]
     Active Substance: NETARSUDIL MESYLATE
     Dosage: 2 GTT, QD
     Route: 047
     Dates: start: 20181211

REACTIONS (2)
  - Eyelash thickening [Not Recovered/Not Resolved]
  - Eyelash changes [Not Recovered/Not Resolved]

NARRATIVE: CASE EVENT DATE: 20190111
